FAERS Safety Report 7503279-2 (Version None)
Quarter: 2011Q2

REPORT INFORMATION
  Report Type: 
  Country: None (occurrence: None)
  Receive Date: 20110525
  Receipt Date: 20110518
  Transmission Date: 20111010
  Serious: Yes (Hospitalization, Other)
  Sender: FDA-Public Use
  Company Number: US-JNJFOC-20101105715

PATIENT
  Sex: Female

DRUGS (4)
  1. LEVAQUIN [Suspect]
     Indication: BRONCHITIS
     Route: 048
     Dates: start: 20090101
  2. LEVAQUIN [Suspect]
     Indication: SINUSITIS
     Route: 048
     Dates: start: 20090101
  3. LEVAQUIN [Suspect]
     Indication: BACTERIAL INFECTION
     Route: 048
     Dates: start: 20090101
  4. PREDNISONE [Suspect]
     Indication: RESPIRATORY DISORDER
     Route: 065

REACTIONS (4)
  - TENDON RUPTURE [None]
  - MUSCLE INJURY [None]
  - TENOSYNOVITIS [None]
  - TENDON DISORDER [None]
